FAERS Safety Report 21126286 (Version 2)
Quarter: 2022Q4

REPORT INFORMATION
  Report Type: Report from Study
  Country: PA (occurrence: PA)
  Receive Date: 20220725
  Receipt Date: 20221024
  Transmission Date: 20230113
  Serious: Yes (Other)
  Sender: FDA-Public Use
  Company Number: PA-NOVARTISPH-NVSC2021PA285446

PATIENT
  Age: 69 Year
  Sex: Female

DRUGS (3)
  1. KISQALI [Suspect]
     Active Substance: RIBOCICLIB
     Indication: Breast cancer metastatic
     Dosage: 600 MG, QD
     Route: 048
     Dates: start: 2018
  2. KISQALI [Suspect]
     Active Substance: RIBOCICLIB
     Dosage: 400 MG, QD
     Route: 048
     Dates: start: 20221017
  3. FULVESTRANT [Suspect]
     Active Substance: FULVESTRANT
     Indication: Product used for unknown indication
     Dosage: UNK
     Route: 065

REACTIONS (8)
  - Metastases to pelvis [Unknown]
  - Metastases to central nervous system [Unknown]
  - Metastases to bone [Unknown]
  - Decreased immune responsiveness [Unknown]
  - Drug intolerance [Unknown]
  - Arthralgia [Unknown]
  - Joint swelling [Unknown]
  - Drug ineffective [Unknown]

NARRATIVE: CASE EVENT DATE: 20220516
